FAERS Safety Report 9245426 (Version 1)
Quarter: 2013Q1

REPORT INFORMATION
  Report Type: Spontaneous
  Country: US (occurrence: None)
  Receive Date: 20121130
  Receipt Date: 20121130
  Transmission Date: 20140127
  Serious: Yes (Death)
  Sender: FDA-Public Use
  Company Number: KV201200205

PATIENT
  Sex: 0

DRUGS (1)
  1. MAKENA (HYDROXYPROGESTERONE CAPROATE 250 MG/ML) INJECTION, 250 MG/ML [Suspect]
     Indication: EXPOSURE DURING PREGNANCY
     Dates: start: 2012, end: 2012

REACTIONS (1)
  - Stillbirth [None]
